FAERS Safety Report 21236323 (Version 2)
Quarter: 2022Q4

REPORT INFORMATION
  Report Type: Spontaneous
  Country: US (occurrence: US)
  Receive Date: 20220822
  Receipt Date: 20221021
  Transmission Date: 20230113
  Serious: Yes (Other)
  Sender: FDA-Public Use
  Company Number: US-CELGENE-USA-2016057511

PATIENT
  Sex: Female

DRUGS (5)
  1. THALOMID [Suspect]
     Active Substance: THALIDOMIDE
     Indication: Product used for unknown indication
     Dosage: 400 MILLIGRAM
     Route: 050
     Dates: start: 201212
  2. THALOMID [Suspect]
     Active Substance: THALIDOMIDE
     Dosage: 200MG-50MG
     Route: 050
     Dates: start: 201305
  3. THALOMID [Suspect]
     Active Substance: THALIDOMIDE
     Dosage: 100 MILLIGRAM
     Route: 050
     Dates: start: 201411
  4. THALOMID [Suspect]
     Active Substance: THALIDOMIDE
     Dosage: 50 MILLIGRAM
     Route: 050
     Dates: start: 201506
  5. THALOMID [Suspect]
     Active Substance: THALIDOMIDE
     Dosage: 50 MILLIGRAM
     Route: 050
     Dates: start: 201511, end: 201605

REACTIONS (3)
  - Exposure via body fluid [Recovered/Resolved]
  - Pregnancy with contraceptive device [Unknown]
  - Normal newborn [Unknown]

NARRATIVE: CASE EVENT DATE: 20170119
